FAERS Safety Report 20331931 (Version 1)
Quarter: 2022Q1

REPORT INFORMATION
  Report Type: Spontaneous
  Country: US (occurrence: None)
  Receive Date: 20220113
  Receipt Date: 20220113
  Transmission Date: 20220423
  Serious: Yes (Hospitalization)
  Sender: FDA-Public Use
  Company Number: None

PATIENT
  Sex: Female
  Weight: 56.7 kg

DRUGS (1)
  1. RITUXIMAB [Suspect]
     Active Substance: RITUXIMAB

REACTIONS (5)
  - Coronavirus test positive [None]
  - Oxygen saturation decreased [None]
  - Hypoxia [None]
  - Dyspnoea [None]
  - C-reactive protein increased [None]

NARRATIVE: CASE EVENT DATE: 20211130
